FAERS Safety Report 18574790 (Version 1)
Quarter: 2020Q4

REPORT INFORMATION
  Report Type: Spontaneous
  Country: US (occurrence: US)
  Receive Date: 20201202
  Receipt Date: 20201202
  Transmission Date: 20210114
  Serious: No
  Sender: FDA-Public Use
  Company Number: None

PATIENT
  Age: 73 Year
  Sex: Male
  Weight: 84.37 kg

DRUGS (1)
  1. SEMAGLUTIDE (SEMAGLUTIDE 0.5MG/0.375ML INJ, SOLN, PEN, 1.5ML) [Suspect]
     Active Substance: SEMAGLUTIDE
     Indication: DIABETES MELLITUS
     Dosage: ?          OTHER STRENGTH:0.5MG/0.375ML, 1.5;?
     Route: 058
     Dates: start: 20190509, end: 20191219

REACTIONS (6)
  - Therapy cessation [None]
  - Vomiting [None]
  - Nausea [None]
  - Diarrhoea [None]
  - Weight decreased [None]
  - Bedridden [None]

NARRATIVE: CASE EVENT DATE: 20200713
